FAERS Safety Report 5642723-2 (Version None)
Quarter: 2008Q1

REPORT INFORMATION
  Report Type: 
  Country: None (occurrence: None)
  Receive Date: 20080226
  Receipt Date: 20080218
  Transmission Date: 20080703
  Serious: Yes (Death)
  Sender: FDA-Public Use
  Company Number: 062-20785-08020283

PATIENT
  Age: 69 Year
  Sex: Male

DRUGS (12)
  1. THALIDOMIDE [Suspect]
     Indication: MULTIPLE MYELOMA
     Dosage: 400 MG, ORAL
     Route: 048
     Dates: start: 20071227, end: 20080121
  2. NEORECORMON (EPOETIN BETA) [Concomitant]
  3. ACYCLOVIR [Concomitant]
  4. ISOSORBIDE DINITRATE [Concomitant]
  5. BISOPROLOL FUMARATE [Concomitant]
  6. SIMVASTATIN [Concomitant]
  7. ENOXAPARIN SODIUM [Concomitant]
  8. TILIDIN (TILIDINE HYDROCHLORIDE) [Concomitant]
  9. AREDIA [Concomitant]
  10. PIRETANIDE (PIRETANIDE) [Concomitant]
  11. NEUPOGEN [Concomitant]
  12. TAVANIC (LEVOFLOXACIN) [Concomitant]

REACTIONS (20)
  - ALANINE AMINOTRANSFERASE INCREASED [None]
  - ANAEMIA [None]
  - ASCITES [None]
  - ASPARTATE AMINOTRANSFERASE INCREASED [None]
  - BLOOD LACTATE DEHYDROGENASE INCREASED [None]
  - CARDIAC FAILURE [None]
  - DISEASE PROGRESSION [None]
  - GAMMA-GLUTAMYLTRANSFERASE INCREASED [None]
  - GASTROENTERITIS [None]
  - HEPATIC CONGESTION [None]
  - HYPERTENSION [None]
  - MULTIPLE MYELOMA [None]
  - NAUSEA [None]
  - NEUTROPENIA [None]
  - PLEURAL EFFUSION [None]
  - PULMONARY HYPERTENSION [None]
  - RESPIRATORY DISTRESS [None]
  - RESPIRATORY FAILURE [None]
  - RIGHT VENTRICULAR FAILURE [None]
  - UPPER RESPIRATORY TRACT INFECTION [None]
